FAERS Safety Report 7196133-X (Version None)
Quarter: 2010Q4

REPORT INFORMATION
  Report Type: 
  Country: None (occurrence: None)
  Receive Date: 20101223
  Receipt Date: 20101015
  Transmission Date: 20110411
  Serious: No
  Sender: FDA-Public Use
  Company Number: US-AMGEN-KDL441774

PATIENT

DRUGS (11)
  1. ENBREL [Suspect]
     Indication: PRODUCT USED FOR UNKNOWN INDICATION
     Dosage: 50 MG, QWK
     Route: 058
  2. AMLODIPINE [Concomitant]
     Dosage: 2.5 MG, UNK
  3. METHOTREXATE [Concomitant]
     Dosage: 2.5 MG, UNK
  4. FOLIC ACID [Concomitant]
     Dosage: 1 MG, UNK
  5. ASCORBIC ACID [Concomitant]
     Dosage: 500 MG, UNK
  6. TRIAMTERENE AND HYDROCHLOROTHIAZIDE [Concomitant]
     Dosage: UNK UNK, UNK
  7. ZINC [Concomitant]
     Dosage: 50 MG, UNK
  8. ECHINACEA EXTRACT [Concomitant]
     Dosage: 80 MG, UNK
  9. FISH OIL [Concomitant]
     Dosage: UNK UNK, UNK
  10. CALCIUM WITH VITAMIN D [Concomitant]
     Dosage: UNK UNK, UNK
  11. PROBIOTIC FEMINA [Concomitant]
     Route: 048

REACTIONS (2)
  - CHEST DISCOMFORT [None]
  - NASOPHARYNGITIS [None]
